FAERS Safety Report 23470654 (Version 1)
Quarter: 2024Q1

REPORT INFORMATION
  Report Type: Spontaneous
  Country: CA (occurrence: None)
  Receive Date: 20240202
  Receipt Date: 20240202
  Transmission Date: 20240410
  Serious: Yes (Hospitalization)
  Sender: FDA-Public Use
  Company Number: 2024A021847

PATIENT
  Sex: Male

DRUGS (3)
  1. CALQUENCE [Interacting]
     Active Substance: ACALABRUTINIB
     Indication: Product used for unknown indication
     Route: 048
  2. ENHERTU [Interacting]
     Active Substance: FAM-TRASTUZUMAB DERUXTECAN-NXKI
     Indication: Chronic lymphocytic leukaemia
     Route: 042
  3. PANTOPRAZOLE [Interacting]
     Active Substance: PANTOPRAZOLE
     Indication: Product used for unknown indication

REACTIONS (2)
  - Drug interaction [Unknown]
  - Ulcer haemorrhage [Unknown]
